FAERS Safety Report 21313180 (Version 1)
Quarter: 2022Q3

REPORT INFORMATION
  Report Type: Spontaneous
  Country: US (occurrence: None)
  Receive Date: 20220909
  Receipt Date: 20220909
  Transmission Date: 20221027
  Serious: No
  Sender: FDA-Public Use
  Company Number: None

PATIENT
  Age: 76 Year
  Sex: Male

DRUGS (1)
  1. AMBRISENTAN [Suspect]
     Active Substance: AMBRISENTAN
     Indication: Pulmonary hypertension
     Dosage: FREQUENCY : DAILY;?
     Route: 048

REACTIONS (5)
  - Asthenia [None]
  - Neuropathy peripheral [None]
  - Weight decreased [None]
  - Chest pain [None]
  - Dizziness [None]

NARRATIVE: CASE EVENT DATE: 20220908
